FAERS Safety Report 4523118-1 (Version None)
Quarter: 2004Q4

REPORT INFORMATION
  Report Type: 
  Country: None (occurrence: None)
  Receive Date: 20041208
  Receipt Date: 20041108
  Transmission Date: 20050328
  Serious: Yes (Hospitalization)
  Sender: FDA-Public Use
  Company Number: 2001056186IT

PATIENT
  Age: 50 Year
  Sex: Female

DRUGS (5)
  1. CAMPTOSAR [Suspect]
     Indication: COLON CANCER
     Dosage: 130 MG, INTRAVENOUS
     Route: 042
     Dates: start: 20010417, end: 20010417
  2. FLUOROBLASTIN          (FLUOROURACIL) [Suspect]
     Indication: COLON CANCER
     Dosage: 3280 MG, INTRAVENOUS
     Route: 042
     Dates: start: 20010417, end: 20010418
  3. LEUCOVORIN CALCIUM [Suspect]
     Indication: COLON CANCER
     Dosage: 410 MG, INTRAVENOUS
     Route: 042
     Dates: start: 20010417, end: 20010418
  4. DEXAMETHASONE [Concomitant]
  5. TROPISETRON HYDROCHLORIDE              (TROPISETRON HYDROCHLORIDE) [Concomitant]

REACTIONS (3)
  - ABDOMINAL PAIN [None]
  - NEUTROPENIA [None]
  - PYREXIA [None]
